FAERS Safety Report 9313988 (Version 1)
Quarter: 2013Q2

REPORT INFORMATION
  Report Type: Spontaneous
  Country: US (occurrence: None)
  Receive Date: 20130524
  Receipt Date: 20130524
  Transmission Date: 20140414
  Serious: No
  Sender: FDA-Public Use
  Company Number: None

PATIENT
  Age: 66 Year
  Sex: Female

DRUGS (10)
  1. LISINOPRIL [Concomitant]
  2. METOPROLOL [Concomitant]
  3. LOVASTATIN [Concomitant]
  4. LEVOTHRYOXINE [Concomitant]
  5. HCTZ [Concomitant]
  6. METFORMIN [Concomitant]
  7. TIMOLOL [Concomitant]
  8. CALCIUM SUPPLEMENT [Concomitant]
  9. OMEPRAZOLE [Concomitant]
  10. GLEEVEC [Suspect]
     Route: 048

REACTIONS (1)
  - Squamous cell carcinoma [None]
